FAERS Safety Report 7008120-2 (Version None)
Quarter: 2010Q3

REPORT INFORMATION
  Report Type: 
  Country: None (occurrence: None)
  Receive Date: 20100922
  Receipt Date: 20100913
  Transmission Date: 20110219
  Serious: Yes (Hospitalization)
  Sender: FDA-Public Use
  Company Number: US-US-EMD SERONO, INC.-7017444

PATIENT
  Sex: Male

DRUGS (10)
  1. REBIF [Suspect]
     Indication: MULTIPLE SCLEROSIS
     Dates: start: 20100501, end: 20100501
  2. REBIF [Suspect]
     Dates: start: 20100816, end: 20100816
  3. REBIF [Suspect]
     Dates: start: 20100823, end: 20100101
  4. REBIF [Suspect]
     Route: 058
     Dates: start: 20100101
  5. ACTIVIA [Concomitant]
     Indication: CONSTIPATION
  6. OMEPRAZOLE [Concomitant]
     Indication: INFLAMMATORY BOWEL DISEASE
  7. PROBIOTICS [Concomitant]
     Indication: CONSTIPATION
  8. VITAMIN E [Concomitant]
     Indication: PROPHYLAXIS
  9. PRILOSEC [Concomitant]
     Indication: ABDOMINAL DISCOMFORT
  10. ZOLOFT [Concomitant]
     Indication: EMOTIONAL DISORDER
     Dates: start: 20100301, end: 20100901

REACTIONS (7)
  - ASTHENIA [None]
  - DECREASED APPETITE [None]
  - GASTROENTERITIS [None]
  - HEADACHE [None]
  - HEPATIC ENZYME INCREASED [None]
  - INFLUENZA LIKE ILLNESS [None]
  - VITAMIN D DEFICIENCY [None]
